FAERS Safety Report 8793908 (Version 1)
Quarter: 2012Q4

REPORT INFORMATION
  Report Type: 
  Country: US (occurrence: US)
  Receive Date: 20120917
  Receipt Date: 20120917
  Transmission Date: 20130627
  Serious: No
  Sender: FDA-Public Use
  Company Number: US-TEVA-359244USA

PATIENT
  Sex: Female

DRUGS (2)
  1. PLAN B ONE-STEP [Suspect]
     Indication: MENSTRUAL CYCLE MANAGEMENT
     Dosage: 1.5 Milligram Daily;
     Route: 048
     Dates: start: 20120911, end: 20120911
  2. UNSPECIFIED INGREDIENT [Suspect]
     Indication: CONTRACEPTION

REACTIONS (2)
  - Menstruation delayed [Not Recovered/Not Resolved]
  - Off label use [Unknown]
